FAERS Safety Report 8200749-9 (Version None)
Quarter: 2012Q1

REPORT INFORMATION
  Report Type: 
  Country: None (occurrence: None)
  Receive Date: 20120307
  Receipt Date: 20120229
  Transmission Date: 20120608
  Serious: Yes (Death)
  Sender: FDA-Public Use
  Company Number: 216938

PATIENT
  Age: 70 Year
  Sex: Female
  Weight: 60 kg

DRUGS (1)
  1. INNOHEP [Suspect]
     Indication: HIP ARTHROPLASTY
     Dosage: SUBCUTANEOUS
     Route: 058

REACTIONS (13)
  - DISORIENTATION [None]
  - RETROPERITONEAL HAEMATOMA [None]
  - ADRENAL HAEMORRHAGE [None]
  - MALAISE [None]
  - NORMOCHROMIC NORMOCYTIC ANAEMIA [None]
  - HEPARIN-INDUCED THROMBOCYTOPENIA [None]
  - CONFUSIONAL STATE [None]
  - NAUSEA [None]
  - VOMITING [None]
  - DECREASED APPETITE [None]
  - GENERAL PHYSICAL HEALTH DETERIORATION [None]
  - SEPTIC SHOCK [None]
  - GASTROINTESTINAL INFECTION [None]
